FAERS Safety Report 8484084-X (Version None)
Quarter: 2012Q3

REPORT INFORMATION
  Report Type: 
  Country: None (occurrence: None)
  Receive Date: 20120703
  Receipt Date: 20120621
  Transmission Date: 20120928
  Serious: Yes (Other)
  Sender: FDA-Public Use
  Company Number: JP-ELI_LILLY_AND_COMPANY-JP201204008413

PATIENT
  Age: 65 Year
  Sex: Female

DRUGS (4)
  1. PANVITAN [Concomitant]
     Dosage: UNK
  2. ALIMTA [Suspect]
     Indication: LUNG CANCER METASTATIC
     Dosage: 500 MG/M2, OTHER
     Route: 065
     Dates: start: 20100518, end: 20120207
  3. ALIMTA [Suspect]
     Dosage: 500 MG/M2, OTHER
     Route: 065
     Dates: start: 20120515
  4. DECADRON [Concomitant]

REACTIONS (7)
  - WHITE BLOOD CELL COUNT DECREASED [None]
  - NEUTROPHIL COUNT DECREASED [None]
  - CONTUSION [None]
  - EPILEPSY [None]
  - LOSS OF CONSCIOUSNESS [None]
  - FALL [None]
  - CENTRAL NERVOUS SYSTEM LESION [None]
